FAERS Safety Report 4666003-7 (Version None)
Quarter: 2005Q2

REPORT INFORMATION
  Report Type: 
  Country: None (occurrence: None)
  Receive Date: 20050517
  Receipt Date: 20050411
  Transmission Date: 20051028
  Serious: No
  Sender: FDA-Public Use
  Company Number: S05-USA-01865-01

PATIENT
  Age: 86 Year
  Sex: Male

DRUGS (6)
  1. NAMENDA [Suspect]
     Indication: DEMENTIA ALZHEIMER'S TYPE
     Dosage: 15 MG QD; PO
     Route: 048
     Dates: start: 20050408
  2. NAMENDA [Suspect]
     Indication: DEMENTIA ALZHEIMER'S TYPE
     Dosage: 5 MG QD; PO
     Route: 048
     Dates: start: 20050325, end: 20050331
  3. NAMENDA [Suspect]
     Indication: DEMENTIA ALZHEIMER'S TYPE
     Dosage: 5 MG BID; PO
     Route: 048
     Dates: start: 20050401, end: 20050407
  4. CYTOMEL [Concomitant]
  5. SYNTHROID [Concomitant]
  6. DETROL [Concomitant]

REACTIONS (1)
  - DIZZINESS [None]
